FAERS Safety Report 4533120-1 (Version None)
Quarter: 2004Q4

REPORT INFORMATION
  Report Type: 
  Country: None (occurrence: None)
  Receive Date: 20041220
  Receipt Date: 20041220
  Transmission Date: 20050328
  Serious: Yes (Life-Threatening, Hospitalization, Disabling)
  Sender: FDA-Public Use
  Company Number: None

PATIENT
  Age: 79 Year
  Sex: Male
  Weight: 74.8435 kg

DRUGS (2)
  1. CELEBREX [Suspect]
     Indication: ARTHRITIS
     Dosage: 200MG  TWICE ORAL
     Route: 048
  2. COUMADIN [Concomitant]

REACTIONS (6)
  - GASTRIC CANCER [None]
  - GASTRIC POLYPS [None]
  - HAEMORRHAGE [None]
  - INFECTION [None]
  - OESOPHAGEAL CARCINOMA [None]
  - OESOPHAGEAL POLYP [None]
